FAERS Safety Report 10214710 (Version 1)
Quarter: 2014Q2

REPORT INFORMATION
  Report Type: Spontaneous
  Country: US (occurrence: US)
  Receive Date: 20140603
  Receipt Date: 20140603
  Transmission Date: 20141212
  Serious: Yes (Hospitalization)
  Sender: FDA-Public Use
  Company Number: US-B.I. PHARMACEUTICALS,INC./RIDGEFIELD-2014-BI-24288BP

PATIENT
  Age: 50 Year
  Sex: Female

DRUGS (16)
  1. SPIRIVA [Suspect]
     Indication: BRONCHITIS CHRONIC
     Dosage: 18 MCG
     Route: 055
     Dates: start: 201106
  2. ADVAIR [Concomitant]
     Indication: BRONCHITIS CHRONIC
     Dosage: FORMULATION: INHALATION SOLUTION; STRENGTH: 1 INHALATION; DAILY DOSE: 2 INHALATIONS
     Route: 055
  3. ALBUTEROL [Concomitant]
     Dosage: FORMULATION: INHALATION SOLUTION
     Route: 055
  4. AZATHIOPRINE [Concomitant]
     Indication: SYSTEMIC LUPUS ERYTHEMATOSUS
     Dosage: 200 MG
     Route: 048
  5. DIAZEPAM [Concomitant]
     Indication: ANXIETY
     Dosage: 30 MG
     Route: 048
  6. GLIMEPIRIDE [Concomitant]
     Indication: DIABETES MELLITUS
     Dosage: 8 MG
     Route: 048
  7. LOVAZA [Concomitant]
     Indication: BLOOD TRIGLYCERIDES INCREASED
     Dosage: 4 G
     Route: 048
  8. METFORMIN [Concomitant]
     Indication: DIABETES MELLITUS
     Dosage: 2000 MG
     Route: 048
  9. NITROQUICK [Concomitant]
     Route: 050
  10. PREMARIN [Concomitant]
     Route: 048
  11. PREDNISONE [Concomitant]
     Indication: ARTHRALGIA
     Dosage: 10 MG
     Route: 048
  12. SEROQUEL XR [Concomitant]
     Indication: DEPRESSION
     Dosage: 300 MG
     Route: 048
  13. VYTORIN [Concomitant]
     Indication: BLOOD CHOLESTEROL INCREASED
     Dosage: 1 ANZ
     Route: 048
  14. WELLBUTRIN [Concomitant]
     Indication: DEPRESSION
     Dosage: 300 MG
     Route: 048
  15. ELIQUIS [Concomitant]
     Indication: ATRIAL FIBRILLATION
     Dosage: 10 MG
     Route: 048
     Dates: start: 201403
  16. ELIQUIS [Concomitant]
     Indication: COAGULOPATHY

REACTIONS (4)
  - Vomiting [Recovered/Resolved]
  - Respiratory arrest [Recovered/Resolved]
  - Respiratory arrest [Recovered/Resolved]
  - Atrial fibrillation [Not Recovered/Not Resolved]
